FAERS Safety Report 4622197-0 (Version None)
Quarter: 2005Q1

REPORT INFORMATION
  Report Type: 
  Country: None (occurrence: None)
  Receive Date: 20050324
  Receipt Date: 20050324
  Transmission Date: 20050727
  Serious: No
  Sender: FDA-Public Use
  Company Number: None

PATIENT
  Sex: Male
  Weight: 115.2 kg

DRUGS (4)
  1. GEMCITABINE [Suspect]
     Dosage: 1000 MG/M2, IV OVER 30-60 MIN ON DAYS 1 AND 8 OF EACH 21-DAY CYCLE
     Route: 042
     Dates: start: 20041220
  2. PACLITAXEL [Suspect]
     Dosage: 50 MG/M2, IV OVER 1 HOUR ON DAYS 1 AND 8 OF EACH 21-DAY CYCLE
     Route: 042
  3. CISPLATIN [Suspect]
     Dosage: 35 MG/M2, IV OVER 1 HOUR ON DAYS 1 AND 8 OF EACH 21-DAY CYCLE
     Route: 042
  4. DECADRON [Concomitant]

REACTIONS (11)
  - ANGIOPATHY [None]
  - ARTHRALGIA [None]
  - BLOOD PRESSURE SYSTOLIC INCREASED [None]
  - CHEST PAIN [None]
  - COGNITIVE DISORDER [None]
  - FATIGUE [None]
  - MENTAL STATUS CHANGES [None]
  - MUSCLE CONTRACTURE [None]
  - NEOPLASM MALIGNANT [None]
  - OEDEMA PERIPHERAL [None]
  - WEIGHT INCREASED [None]
